FAERS Safety Report 19053493 (Version 2)
Quarter: 2021Q2

REPORT INFORMATION
  Report Type: Report from Study
  Country: CA (occurrence: CA)
  Receive Date: 20210325
  Receipt Date: 20210413
  Transmission Date: 20210717
  Serious: Yes (Other)
  Sender: FDA-Public Use
  Company Number: CA-ALXN-A202103671

PATIENT
  Age: 40 Year
  Sex: Female
  Weight: 83.2 kg

DRUGS (4)
  1. SOLIRIS [Suspect]
     Active Substance: ECULIZUMAB
     Indication: PAROXYSMAL NOCTURNAL HAEMOGLOBINURIA
     Dosage: 600 MG, QW
     Route: 042
     Dates: start: 20150318, end: 20150408
  2. BEXSERO [Concomitant]
     Active Substance: NEISSERIA MENINGITIDIS GROUP B FHBP FUSION PROTEIN ANTIGEN\NEISSERIA MENINGITIDIS GROUP B NADA PROTEIN ANTIGEN\NEISSERIA MENINGITIDIS GROUP B NHBA FUSION PROTEIN ANTIGEN\NEISSERIA MENINGITIDIS GROUP B STRAIN NZ98/254 OUTER MEMBRANE VESICLE\NEISSERIA MENINGITIDIS SEROGROUP B FHBP FUSION PROTEIN ANTIG
     Indication: IMMUNISATION
     Dosage: UNK
     Route: 065
     Dates: start: 20150429
  3. COUMADIN [Concomitant]
     Active Substance: WARFARIN SODIUM
     Indication: ANTICOAGULANT THERAPY
     Dosage: 9 MG, QD
     Route: 048
     Dates: start: 201406
  4. SOLIRIS [Suspect]
     Active Substance: ECULIZUMAB
     Dosage: 900 MG, Q2W
     Route: 042
     Dates: start: 20150413, end: 20210401

REACTIONS (17)
  - Laboratory test abnormal [Not Recovered/Not Resolved]
  - Iron deficiency [Not Recovered/Not Resolved]
  - Nodule [Recovered/Resolved]
  - Jaundice [Not Recovered/Not Resolved]
  - Haemoglobin decreased [Unknown]
  - Vision blurred [Not Recovered/Not Resolved]
  - Headache [Recovered/Resolved]
  - Extravascular haemolysis [Not Recovered/Not Resolved]
  - Oedema peripheral [Not Recovered/Not Resolved]
  - Abdominal pain [Not Recovered/Not Resolved]
  - Abdominal discomfort [Not Recovered/Not Resolved]
  - Cardiac murmur [Unknown]
  - Chest pain [Recovered/Resolved]
  - Blood bilirubin increased [Unknown]
  - Chromaturia [Not Recovered/Not Resolved]
  - Cough [Unknown]
  - Epistaxis [Recovered/Resolved]

NARRATIVE: CASE EVENT DATE: 20150727
